FAERS Safety Report 4499627-0 (Version None)
Quarter: 2004Q4

REPORT INFORMATION
  Report Type: 
  Country: None (occurrence: None)
  Receive Date: 20041110
  Receipt Date: 20041110
  Transmission Date: 20050328
  Serious: No
  Sender: FDA-Public Use
  Company Number: None

PATIENT
  Age: 78 Year
  Sex: Male
  Weight: 66.2252 kg

DRUGS (1)
  1. METOCLOPRAMIDE [Suspect]
     Indication: GASTROINTESTINAL MOTILITY DISORDER
     Dosage: 5 MG EVERY 6 HOURS ORAL
     Route: 048
     Dates: start: 20041020, end: 20041028

REACTIONS (1)
  - CONFUSIONAL STATE [None]
